FAERS Safety Report 16777428 (Version 2)
Quarter: 2019Q4

REPORT INFORMATION
  Report Type: Spontaneous
  Country: US (occurrence: US)
  Receive Date: 20190905
  Receipt Date: 20191008
  Transmission Date: 20200122
  Serious: No
  Sender: FDA-Public Use
  Company Number: US-ASTRAZENECA-2019SF13560

PATIENT
  Age: 20950 Day
  Sex: Female
  Weight: 86.2 kg

DRUGS (1)
  1. SYMBICORT [Suspect]
     Active Substance: BUDESONIDE\FORMOTEROL FUMARATE DIHYDRATE
     Indication: CHRONIC OBSTRUCTIVE PULMONARY DISEASE
     Dosage: 160/4.5 MCG TWO TIMES A DAY (2 PUFFS IN THE MORNING AND 2 PUFFS )
     Route: 055
     Dates: start: 2015

REACTIONS (6)
  - Wheezing [Unknown]
  - Product dose omission [Unknown]
  - Dyspnoea [Recovered/Resolved]
  - Secretion discharge [Unknown]
  - Device issue [Unknown]
  - Intentional product misuse [Unknown]

NARRATIVE: CASE EVENT DATE: 20190715
